FAERS Safety Report 4620943-3 (Version None)
Quarter: 2005Q1

REPORT INFORMATION
  Report Type: 
  Country: None (occurrence: None)
  Receive Date: 20050325
  Receipt Date: 20050308
  Transmission Date: 20050727
  Serious: Yes (Life-Threatening, Hospitalization, Disabling)
  Sender: FDA-Public Use
  Company Number: F01200403967

PATIENT
  Age: 75 Year
  Sex: Male

DRUGS (7)
  1. (OXALIPLATIN) - SOLUTION 145 MG [Suspect]
     Indication: COLORECTAL CANCER METASTATIC
     Dosage: 145 MG Q2W
     Route: 042
     Dates: start: 20041117, end: 20041117
  2. FLUOROURACIL [Suspect]
     Dosage: 675 MG IV BOLUS THEN 1025 MG IV CONTINUOUS INFUSION, Q2W
     Route: 042
     Dates: start: 20041117, end: 20041118
  3. LEUCOVORIN CALCIUM [Suspect]
     Dosage: 340 MG Q2W
     Route: 042
     Dates: start: 20041117, end: 20041118
  4. BEVACIZUMAB OR PLACEBO SOLUTION 1 UNIT [Suspect]
     Dosage: 1 UNIT Q2W
     Route: 042
     Dates: start: 20041117, end: 20041117
  5. ZOFRAN [Concomitant]
  6. NU-SEALS ASPIRIN (ACETYLSALICYLIC ACID) [Concomitant]
  7. FE FUMARATE (FERROUS FUMARATE) [Concomitant]

REACTIONS (9)
  - CEREBRAL INFARCTION [None]
  - CEREBROVASCULAR ACCIDENT [None]
  - DYSPNOEA [None]
  - GASTROINTESTINAL DISORDER [None]
  - GASTROOESOPHAGEAL REFLUX DISEASE [None]
  - METASTASES TO CENTRAL NERVOUS SYSTEM [None]
  - MYOCARDIAL INFARCTION [None]
  - NEUTROPENIA [None]
  - PYREXIA [None]
